FAERS Safety Report 10645537 (Version 3)
Quarter: 2014Q4

REPORT INFORMATION
  Report Type: Spontaneous
  Country: US (occurrence: US)
  Receive Date: 20141211
  Receipt Date: 20141222
  Transmission Date: 20150529
  Serious: Yes (Other)
  Sender: FDA-Public Use
  Company Number: US-ELI_LILLY_AND_COMPANY-US201411009568

PATIENT
  Sex: Female
  Weight: 73 kg

DRUGS (4)
  1. TYVASO [Suspect]
     Active Substance: TREPROSTINIL
     Indication: PULMONARY ARTERIAL HYPERTENSION
     Dosage: 54 UG, QID
     Route: 055
     Dates: start: 20120507
  2. COUMADIN [Concomitant]
     Active Substance: WARFARIN SODIUM
  3. TADALAFIL [Suspect]
     Active Substance: TADALAFIL
     Indication: PRODUCT USED FOR UNKNOWN INDICATION
     Dosage: UNK, UNKNOWN
     Route: 065
     Dates: start: 20141129
  4. TRACLEER [Concomitant]
     Active Substance: BOSENTAN\BOSENTAN MONOHYDRATE
     Dosage: UNK, UNKNOWN
     Route: 065

REACTIONS (5)
  - Vision blurred [Unknown]
  - Malaise [Unknown]
  - Drug ineffective [Unknown]
  - Panic reaction [Unknown]
  - Chest discomfort [Recovered/Resolved]
